FAERS Safety Report 9050456 (Version 1)
Quarter: 2013Q1

REPORT INFORMATION
  Report Type: Report from Study
  Country: DE (occurrence: DE)
  Receive Date: 20130205
  Receipt Date: 20130205
  Transmission Date: 20140127
  Serious: Yes (Hospitalization)
  Sender: FDA-Public Use
  Company Number: DE-ACTELION-A-US2013-78887

PATIENT
  Age: 75 Year
  Sex: Female

DRUGS (1)
  1. VENTAVIS [Suspect]
     Indication: PULMONARY ARTERIAL HYPERTENSION
     Dosage: 5 MCG, 6X/DAY
     Route: 055
     Dates: start: 20100609

REACTIONS (2)
  - Pulmonary oedema [Unknown]
  - Pneumonia [Unknown]
